FAERS Safety Report 11167500 (Version 1)
Quarter: 2015Q2

REPORT INFORMATION
  Report Type: Spontaneous
  Country: JP (occurrence: JP)
  Receive Date: 20150605
  Receipt Date: 20150605
  Transmission Date: 20150821
  Serious: Yes (Other)
  Sender: FDA-Public Use
  Company Number: JP-APOTEX-2015AP009682

PATIENT
  Age: 10 Year
  Weight: 42 kg

DRUGS (2)
  1. PAXIL CR [Suspect]
     Active Substance: PAROXETINE HYDROCHLORIDE
     Indication: OBSESSIVE-COMPULSIVE DISORDER
     Dosage: 12.5 MG, QD
     Route: 048
     Dates: start: 20150403, end: 20150406
  2. PAXIL CR [Suspect]
     Active Substance: PAROXETINE HYDROCHLORIDE
     Indication: AUTISM SPECTRUM DISORDER

REACTIONS (5)
  - Euphoric mood [Recovered/Resolved]
  - Terminal insomnia [Recovered/Resolved]
  - Activation syndrome [Recovered/Resolved]
  - Hyperhidrosis [Recovered/Resolved]
  - Aggression [Recovered/Resolved]

NARRATIVE: CASE EVENT DATE: 20150405
